FAERS Safety Report 21044590 (Version 2)
Quarter: 2022Q4

REPORT INFORMATION
  Report Type: Report from Study
  Country: CO (occurrence: CO)
  Receive Date: 20220705
  Receipt Date: 20221011
  Transmission Date: 20230112
  Serious: No
  Sender: FDA-Public Use
  Company Number: CO-JNJFOC-20220643699

PATIENT
  Age: 71 Year
  Sex: Male
  Weight: 94 kg

DRUGS (2)
  1. TREMFYA [Suspect]
     Active Substance: GUSELKUMAB
     Indication: Psoriasis
     Dosage: LAST ADMINISTRATION 26-APR-2022
     Route: 058
     Dates: start: 20211220
  2. TREMFYA [Suspect]
     Active Substance: GUSELKUMAB

REACTIONS (2)
  - Device leakage [Unknown]
  - Underdose [Unknown]

NARRATIVE: CASE EVENT DATE: 20220426
